FAERS Safety Report 17106423 (Version 9)
Quarter: 2022Q2

REPORT INFORMATION
  Report Type: Spontaneous
  Country: US (occurrence: US)
  Receive Date: 20191203
  Receipt Date: 20220419
  Transmission Date: 20220720
  Serious: No
  Sender: FDA-Public Use
  Company Number: US-PFIZER INC-2019503724

PATIENT
  Age: 74 Year
  Sex: Female
  Weight: 102 kg

DRUGS (3)
  1. CELEBREX [Suspect]
     Active Substance: CELECOXIB
     Indication: Arthritis
     Dosage: 100 MG, 1X/DAY
     Route: 048
     Dates: start: 201910, end: 2019
  2. CELEBREX [Suspect]
     Active Substance: CELECOXIB
     Dosage: 200 MG, DAILY
     Dates: start: 2019, end: 2019
  3. CELEBREX [Suspect]
     Active Substance: CELECOXIB
     Dosage: 2 DF, DAILY
     Dates: start: 201912

REACTIONS (4)
  - Drug ineffective [Unknown]
  - Product prescribing error [Unknown]
  - Incorrect dose administered [Unknown]
  - Product dispensing error [Unknown]

NARRATIVE: CASE EVENT DATE: 20191001
